FAERS Safety Report 17605419 (Version 1)
Quarter: 2020Q1

REPORT INFORMATION
  Report Type: Spontaneous
  Country: US (occurrence: US)
  Receive Date: 20200331
  Receipt Date: 20200331
  Transmission Date: 20200409
  Serious: Yes (Other)
  Sender: FDA-Public Use
  Company Number: US-GUARDIAN DRUG COMPANY-2082136

PATIENT
  Sex: Female

DRUGS (1)
  1. GUAIFENESIN EXTENDED-RELEASE [Suspect]
     Active Substance: GUAIFENESIN
     Indication: FIBROMYALGIA
     Route: 065

REACTIONS (5)
  - Loss of personal independence in daily activities [Unknown]
  - Product use in unapproved indication [Unknown]
  - Bedridden [Unknown]
  - Product odour abnormal [Unknown]
  - Adverse event [Unknown]
